FAERS Safety Report 7981564-8 (Version None)
Quarter: 2011Q4

REPORT INFORMATION
  Report Type: 
  Country: None (occurrence: None)
  Receive Date: 20111215
  Receipt Date: 20111209
  Transmission Date: 20120403
  Serious: Yes (Other)
  Sender: FDA-Public Use
  Company Number: JP-BAYER-200914331BYL

PATIENT
  Age: 67 Year
  Sex: Male
  Weight: 55 kg

DRUGS (9)
  1. RABEPRAZOLE SODIUM [Concomitant]
     Indication: DUODENAL ULCER
     Dosage: DAILY DOSE 20 MG
     Route: 048
     Dates: start: 20070808
  2. NEXAVAR [Suspect]
     Dosage: 400 MG, QD
     Route: 048
     Dates: start: 20091031, end: 20101102
  3. HOCHUUEKKITOU [Concomitant]
     Indication: ASTHENIA
     Dosage: DAILY DOSE 7.5 G
     Route: 048
     Dates: start: 20100721, end: 20110119
  4. NEXAVAR [Suspect]
     Indication: HEPATIC NEOPLASM MALIGNANT
     Dosage: 400 MG, BID
     Route: 048
     Dates: start: 20091015, end: 20091030
  5. KAKKON-TO [Concomitant]
     Indication: ASTHENIA
     Dosage: DAILY DOSE 7.5 G
     Route: 048
     Dates: start: 20100929, end: 20101013
  6. AMLODIPINE [Concomitant]
     Indication: BLOOD PRESSURE INCREASED
     Dosage: DAILY DOSE 2.5 MG
     Route: 048
     Dates: start: 20091022
  7. SELBEX [Concomitant]
     Indication: DUODENAL ULCER
     Dosage: DAILY DOSE 150 MG
     Route: 048
     Dates: start: 20081009
  8. LOPERAMIDE HCL [Concomitant]
     Indication: DIARRHOEA
     Dosage: DAILY DOSE 2 MG
     Route: 048
     Dates: start: 20091112, end: 20101223
  9. GOREI-SAN [Concomitant]
     Indication: ASTHENIA
     Dosage: DAILY DOSE 5 G
     Route: 048
     Dates: start: 20100929, end: 20101013

REACTIONS (3)
  - ALOPECIA [None]
  - SKIN HYPOPIGMENTATION [None]
  - VASCULITIS [None]
